FAERS Safety Report 7743128-0 (Version None)
Quarter: 2011Q3

REPORT INFORMATION
  Report Type: 
  Country: None (occurrence: None)
  Receive Date: 20110912
  Receipt Date: 20110907
  Transmission Date: 20111222
  Serious: Yes (Other)
  Sender: FDA-Public Use
  Company Number: IE-ROCHE-801350

PATIENT
  Sex: Female
  Weight: 804 kg

DRUGS (2)
  1. LAPATINIB [Suspect]
     Indication: BREAST CANCER METASTATIC
     Route: 048
     Dates: start: 20110202
  2. XELODA [Suspect]
     Indication: BREAST CANCER METASTATIC
     Route: 048
     Dates: start: 20110202, end: 20110315

REACTIONS (4)
  - DISEASE PROGRESSION [None]
  - LACERATION [None]
  - SKIN FISSURES [None]
  - LIP DISORDER [None]
